FAERS Safety Report 6178119-7 (Version None)
Quarter: 2009Q2

REPORT INFORMATION
  Report Type: 
  Country: None (occurrence: None)
  Receive Date: 20090430
  Receipt Date: 20090423
  Transmission Date: 20091009
  Serious: Yes (Death)
  Sender: FDA-Public Use
  Company Number: 2008JP003868

PATIENT
  Age: 53 Year
  Sex: Female

DRUGS (2)
  1. PROGRAF [Suspect]
     Indication: RHEUMATOID ARTHRITIS
     Dates: start: 20050101
  2. METHOTREXATE [Concomitant]

REACTIONS (4)
  - DISSEMINATED INTRAVASCULAR COAGULATION [None]
  - EPSTEIN-BARR VIRUS TEST POSITIVE [None]
  - LYMPHOMA [None]
  - RESPIRATORY FAILURE [None]
